FAERS Safety Report 4693347-5 (Version None)
Quarter: 2005Q2

REPORT INFORMATION
  Report Type: 
  Country: None (occurrence: None)
  Receive Date: 20050615
  Receipt Date: 20050531
  Transmission Date: 20051028
  Serious: No
  Sender: FDA-Public Use
  Company Number: US_0411107577

PATIENT
  Age: 34 Year
  Sex: Female
  Weight: 111 kg

DRUGS (24)
  1. ZYPREXA [Suspect]
     Indication: SCHIZOPHRENIA
     Dosage: 20 MG/1 DAY
     Dates: start: 19960101, end: 20041007
  2. OLANZIPINE/FLUOXETINE CAPSULE [Concomitant]
  3. QUETIAPINE FUMARATE [Concomitant]
  4. ZIPRASIDONE [Concomitant]
  5. HALDOL(HALOPERIDOL DECANOATE) [Concomitant]
  6. DIVALPROEX SODIUM [Concomitant]
  7. CITALOPRAM HYDROBROMIDE [Concomitant]
  8. GLIPIZIDE [Concomitant]
  9. GLYBURIDE AND METFORMIN HCL [Concomitant]
  10. CELEXA [Concomitant]
  11. CHLORPROMAZINE [Concomitant]
  12. PREMARIN [Concomitant]
  13. OMEPRAZOLE [Concomitant]
  14. CLONAZEPAM [Concomitant]
  15. CARAFATE [Concomitant]
  16. NEURONTIN(GABAPENTIN PFIZER) [Concomitant]
  17. METAXALONE [Concomitant]
  18. PEPCID [Concomitant]
  19. SINEQUAN [Concomitant]
  20. TOPAMAX [Concomitant]
  21. WELLBUTRIN [Concomitant]
  22. PROZAC [Concomitant]
  23. TRAZADONE(TRAZODONE) [Concomitant]
  24. PAROXETINE HCL [Concomitant]

REACTIONS (3)
  - CHOLECYSTECTOMY [None]
  - DIABETES MELLITUS [None]
  - WEIGHT INCREASED [None]
